FAERS Safety Report 7282425-2 (Version None)
Quarter: 2011Q1

REPORT INFORMATION
  Report Type: 
  Country: None (occurrence: None)
  Receive Date: 20110125
  Receipt Date: 20110110
  Transmission Date: 20110831
  Serious: Yes (Death)
  Sender: FDA-Public Use
  Company Number: 025491

PATIENT
  Age: 37 Year
  Sex: Female

DRUGS (11)
  1. ZIPRASIDONE [Suspect]
  2. GABAPENTIN [Suspect]
  3. ETHANOL [Suspect]
  4. DIPHENHYDRAMINE [Suspect]
  5. NAPROXEN [Suspect]
  6. ZOLPIDEM [Suspect]
  7. ALPRAZOLAM [Suspect]
  8. OXYCODONE [Suspect]
  9. AMLODIPINE [Suspect]
  10. TRICYCLIC ANTIDEPRESSANTS [Suspect]
  11. ACETAMINOPHEN [Suspect]

REACTIONS (1)
  - COMPLETED SUICIDE [None]
